FAERS Safety Report 25527948 (Version 1)
Quarter: 2025Q3

REPORT INFORMATION
  Report Type: Spontaneous
  Country: US (occurrence: US)
  Receive Date: 20250708
  Receipt Date: 20250708
  Transmission Date: 20251020
  Serious: No
  Sender: KYOWA
  Company Number: US-KYOWAKIRIN-2025KK012927

PATIENT

DRUGS (1)
  1. POTELIGEO [Suspect]
     Active Substance: MOGAMULIZUMAB-KPKC
     Indication: Lymphoma
     Route: 065
     Dates: start: 20250625

REACTIONS (3)
  - Headache [Recovering/Resolving]
  - Chills [Recovered/Resolved]
  - Product use in unapproved indication [Not Recovered/Not Resolved]

NARRATIVE: CASE EVENT DATE: 20250625
